FAERS Safety Report 18498941 (Version 1)
Quarter: 2020Q4

REPORT INFORMATION
  Report Type: Spontaneous
  Country: US (occurrence: US)
  Receive Date: 20201112
  Receipt Date: 20201112
  Transmission Date: 20210114
  Serious: No
  Sender: FDA-Public Use
  Company Number: NVSC2020US302501

PATIENT
  Sex: Female

DRUGS (1)
  1. PIQRAY [Suspect]
     Active Substance: ALPELISIB
     Indication: METASTASES TO BREAST
     Dosage: 300 MG, QD
     Route: 048
     Dates: start: 202009, end: 202010

REACTIONS (9)
  - Fatigue [Unknown]
  - Rash [Unknown]
  - Myalgia [Unknown]
  - Thirst [Unknown]
  - Dry skin [Unknown]
  - Dry eye [Unknown]
  - Hyperglycaemia [Unknown]
  - Headache [Unknown]
  - Nausea [Unknown]
